FAERS Safety Report 4608944-2 (Version None)
Quarter: 2005Q1

REPORT INFORMATION
  Report Type: 
  Country: None (occurrence: None)
  Receive Date: 20050311
  Receipt Date: 20050302
  Transmission Date: 20050727
  Serious: Yes (Hospitalization)
  Sender: FDA-Public Use
  Company Number: 2005-125983-NL

PATIENT
  Age: 58 Year
  Sex: Female

DRUGS (4)
  1. MIRTAZAPINE [Suspect]
     Dosage: 30 MG
     Dates: start: 19991012, end: 19991027
  2. ERGENYL CHRONO [Suspect]
     Dosage: 450 MG
     Dates: start: 19991022, end: 19991027
  3. PROTHIPENDYL HYDROCHLORIDE [Suspect]
     Dosage: 40 MG
     Dates: start: 19990825, end: 19991009
  4. LORAZEPAM [Concomitant]

REACTIONS (3)
  - EYELID OEDEMA [None]
  - GASTROINTESTINAL DISORDER [None]
  - PANCREATIC ENZYMES DECREASED [None]
